FAERS Safety Report 7371093-7 (Version None)
Quarter: 2011Q1

REPORT INFORMATION
  Report Type: 
  Country: None (occurrence: None)
  Receive Date: 20110225
  Receipt Date: 20110125
  Transmission Date: 20110831
  Serious: No
  Sender: FDA-Public Use
  Company Number: 322211

PATIENT
  Age: 61 Year
  Sex: Female

DRUGS (3)
  1. VICTOZA [Suspect]
     Indication: TYPE 2 DIABETES MELLITUS
     Dosage: 1.2 MG, QD, SUBCUTANEOUS, 0.6 MG, QD, SUBCUTANEOUS
     Route: 058
     Dates: start: 20110121, end: 20110123
  2. VICTOZA [Suspect]
     Indication: TYPE 2 DIABETES MELLITUS
     Dosage: 1.2 MG, QD, SUBCUTANEOUS, 0.6 MG, QD, SUBCUTANEOUS
     Route: 058
     Dates: start: 20110125
  3. METFORMIN HCL [Concomitant]

REACTIONS (5)
  - MALAISE [None]
  - BLOOD GLUCOSE INCREASED [None]
  - VOMITING [None]
  - INCORRECT DOSE ADMINISTERED [None]
  - DRUG DOSE OMISSION [None]
